APPROVED DRUG PRODUCT: VISINE L.R.
Active Ingredient: OXYMETAZOLINE HYDROCHLORIDE
Strength: 0.025%
Dosage Form/Route: SOLUTION/DROPS;OPHTHALMIC
Application: N019407 | Product #001
Applicant: KENVUE BRANDS LLC
Approved: Mar 31, 1989 | RLD: Yes | RS: Yes | Type: OTC